FAERS Safety Report 7998924-1 (Version None)
Quarter: 2011Q4

REPORT INFORMATION
  Report Type: 
  Country: None (occurrence: None)
  Receive Date: 20111221
  Receipt Date: 20111214
  Transmission Date: 20120403
  Serious: Yes (Hospitalization, Other)
  Sender: FDA-Public Use
  Company Number: BE-GLAXOSMITHKLINE-B0769882A

PATIENT
  Sex: Female

DRUGS (1)
  1. TROBALT [Suspect]
     Indication: EPILEPSY
     Route: 065

REACTIONS (2)
  - COMA [None]
  - OVERDOSE [None]
